FAERS Safety Report 19398597 (Version 1)
Quarter: 2021Q2

REPORT INFORMATION
  Report Type: Spontaneous
  Country: US (occurrence: US)
  Receive Date: 20210609
  Receipt Date: 20210609
  Transmission Date: 20210717
  Serious: Yes (Other)
  Sender: FDA-Public Use
  Company Number: None

PATIENT
  Sex: Female

DRUGS (18)
  1. LIDO/PRILOCN CRE [Concomitant]
  2. PANTOPRAZOLE [Concomitant]
     Active Substance: PANTOPRAZOLE
  3. INSULIN ASPA FLEXPEN [Concomitant]
  4. TRIAM/HCTZ [Concomitant]
     Active Substance: HYDROCHLOROTHIAZIDE\TRIAMTERENE
  5. LOPERAMIDE [Concomitant]
     Active Substance: LOPERAMIDE
  6. NOVOLOG [Concomitant]
     Active Substance: INSULIN ASPART
  7. CREON [Concomitant]
     Active Substance: PANCRELIPASE AMYLASE\PANCRELIPASE LIPASE\PANCRELIPASE PROTEASE
  8. TRESIBA FLEX [Concomitant]
  9. PROCHLORPER [Concomitant]
  10. CENTRUM SILVER CHW [Concomitant]
  11. LEVOFLOXACIN. [Concomitant]
     Active Substance: LEVOFLOXACIN
  12. ONDANSETRON [Concomitant]
     Active Substance: ONDANSETRON
  13. PROLIA [Suspect]
     Active Substance: DENOSUMAB
     Indication: OSTEOPOROSIS
     Dosage: 1 SYR Q6M SQ
     Route: 058
     Dates: start: 20180515
  14. DEXAMETHASON [Concomitant]
     Active Substance: DEXAMETHASONE
  15. DIPHEN/ATROP [Concomitant]
     Active Substance: ATROPINE SULFATE\DIPHENOXYLATE
  16. MULTI?VIT [Concomitant]
     Active Substance: VITAMINS
  17. RISPERDAL [Concomitant]
     Active Substance: RISPERIDONE
  18. VITAMIN D3 [Concomitant]
     Active Substance: CHOLECALCIFEROL

REACTIONS (1)
  - Pancreatic carcinoma [None]
